FAERS Safety Report 4347309-8 (Version None)
Quarter: 2004Q2

REPORT INFORMATION
  Report Type: 
  Country: None (occurrence: None)
  Receive Date: 20040422
  Receipt Date: 20040406
  Transmission Date: 20050107
  Serious: Yes (Hospitalization)
  Sender: FDA-Public Use
  Company Number: JP_030300475

PATIENT
  Age: 73 Year
  Sex: Male
  Weight: 61 kg

DRUGS (4)
  1. GEMZAR [Suspect]
     Indication: NON-SMALL CELL LUNG CANCER
     Dosage: 800 MG/M2/OTHER
     Route: 050
     Dates: start: 20021017, end: 20021128
  2. DOCETAXEL [Concomitant]
  3. DEXAMETHASONE [Concomitant]
  4. NASEA (RAMOSETRON HYDROCHLORIDE) [Concomitant]

REACTIONS (8)
  - ANAEMIA [None]
  - C-REACTIVE PROTEIN INCREASED [None]
  - CONDITION AGGRAVATED [None]
  - CONSTIPATION [None]
  - GRAM STAIN POSITIVE [None]
  - MALAISE [None]
  - PYREXIA [None]
  - URINARY TRACT INFECTION [None]
